FAERS Safety Report 6358487-3 (Version None)
Quarter: 2009Q3

REPORT INFORMATION
  Report Type: 
  Country: None (occurrence: None)
  Receive Date: 20090916
  Receipt Date: 20090520
  Transmission Date: 20100115
  Serious: Yes (Hospitalization)
  Sender: FDA-Public Use
  Company Number: US-AMGEN-US345859

PATIENT
  Sex: Male
  Weight: 68 kg

DRUGS (1)
  1. NEUPOGEN [Suspect]
     Indication: NEUTROPENIA
     Route: 058
     Dates: start: 20050322, end: 20051116

REACTIONS (1)
  - BONE PAIN [None]
